FAERS Safety Report 10077340 (Version 2)
Quarter: 2014Q2

REPORT INFORMATION
  Report Type: Spontaneous
  Country: US (occurrence: US)
  Receive Date: 20140414
  Receipt Date: 20140414
  Transmission Date: 20141212
  Serious: No
  Sender: FDA-Public Use
  Company Number: US-BANPHARM-20131364

PATIENT
  Sex: Male
  Weight: 99.79 kg

DRUGS (3)
  1. ALEVE LIQUID GELS 220 MG [Suspect]
     Indication: BACK PAIN
     Dosage: 2 DF, BID,
     Route: 048
     Dates: start: 2013
  2. HEART MEDICATION [Concomitant]
  3. BAYER ASPIRIN [Concomitant]

REACTIONS (3)
  - Constipation [Not Recovered/Not Resolved]
  - Incorrect dose administered [Unknown]
  - Inappropriate schedule of drug administration [Unknown]
